FAERS Safety Report 10180829 (Version 1)
Quarter: 2014Q2

REPORT INFORMATION
  Report Type: Spontaneous
  Country: US (occurrence: US)
  Receive Date: 20140519
  Receipt Date: 20140519
  Transmission Date: 20141212
  Serious: No
  Sender: FDA-Public Use
  Company Number: US-AMGEN INC.-USASP2014012718

PATIENT
  Sex: Female

DRUGS (3)
  1. PROLIA [Suspect]
     Indication: BONE LOSS
     Dosage: UNK
     Route: 065
  2. PROLIA [Suspect]
  3. FEMARA [Concomitant]
     Dosage: UNK
     Route: 065

REACTIONS (4)
  - Dry skin [Unknown]
  - Unevaluable event [Unknown]
  - Pruritus [Unknown]
  - Urticaria [Unknown]
